FAERS Safety Report 12958590 (Version 1)
Quarter: 2016Q4

REPORT INFORMATION
  Report Type: Spontaneous
  Country: US (occurrence: US)
  Receive Date: 20161121
  Receipt Date: 20161121
  Transmission Date: 20170207
  Serious: No
  Sender: FDA-Public Use
  Company Number: US-TEVA-659688USA

PATIENT
  Age: 68 Year
  Sex: Female

DRUGS (1)
  1. BUDESONIDE. [Suspect]
     Active Substance: BUDESONIDE
     Route: 065

REACTIONS (4)
  - Muscle spasms [Unknown]
  - Urinary tract infection [Unknown]
  - Chest pain [Unknown]
  - Dysphonia [Unknown]

NARRATIVE: CASE EVENT DATE: 201602
